FAERS Safety Report 7418529-0 (Version None)
Quarter: 2011Q2

REPORT INFORMATION
  Report Type: 
  Country: None (occurrence: None)
  Receive Date: 20110407
  Receipt Date: 20110325
  Transmission Date: 20111010
  Serious: Yes (Hospitalization)
  Sender: FDA-Public Use
  Company Number: 029609

PATIENT
  Sex: Male

DRUGS (13)
  1. UNIPRIL /00885601/) (UNIPRIL) [Suspect]
     Dosage: (10 MG, 5 MG TABLETS; 14 TABLETS ORAL)
     Route: 048
     Dates: start: 20100131, end: 20110130
  2. NORVASC [Suspect]
     Dates: start: 20100130, end: 20110131
  3. ACTOPLUS MET [Concomitant]
  4. PEPTAZOL /01263202/) [Concomitant]
  5. KEPPRA [Suspect]
     Dosage: (2000 MG, 20 TABLETS ORAL)
     Route: 048
     Dates: start: 20110126, end: 20110130
  6. CARVEDILOL [Suspect]
     Dosage: (12.5 MG ORAL)
     Route: 048
     Dates: start: 20100131, end: 20110130
  7. TICLOPIDINE HCL [Concomitant]
  8. CIPRALEX /01588501/ (CIPRALEX) [Suspect]
     Dates: start: 20100130, end: 20110131
  9. ALLOPURINOL [Concomitant]
  10. METFORMIN [Concomitant]
  11. XANAX [Concomitant]
  12. CRESTOR [Concomitant]
  13. PLAVIX [Concomitant]

REACTIONS (1)
  - SYNCOPE [None]
